FAERS Safety Report 8903450 (Version 3)
Quarter: 2013Q4

REPORT INFORMATION
  Report Type: Spontaneous
  Country: GB (occurrence: GB)
  Receive Date: 20121113
  Receipt Date: 20131003
  Transmission Date: 20140711
  Serious: Yes (Hospitalization, Other)
  Sender: FDA-Public Use
  Company Number: GB-JNJFOC-20040901029

PATIENT
  Age: 73 Year
  Sex: Male

DRUGS (3)
  1. IBUPROFEN [Suspect]
     Indication: PAIN
     Route: 048
     Dates: end: 20031205
  2. TRAMADOL [Concomitant]
     Indication: PAIN
     Route: 048
  3. EFFEXOR [Concomitant]
     Indication: DEPRESSION
     Route: 048

REACTIONS (3)
  - Haematemesis [Recovering/Resolving]
  - Hiatus hernia [Recovering/Resolving]
  - Duodenal ulcer [Recovering/Resolving]
